FAERS Safety Report 18437918 (Version 5)
Quarter: 2021Q1

REPORT INFORMATION
  Report Type: Report from Study
  Country: US (occurrence: US)
  Receive Date: 20201028
  Receipt Date: 20210313
  Transmission Date: 20210419
  Serious: Yes (Other)
  Sender: FDA-Public Use
  Company Number: NVSC2020US288396

PATIENT
  Age: 54 Year
  Sex: Female

DRUGS (2)
  1. COSENTYX [Suspect]
     Active Substance: SECUKINUMAB
     Dosage: 300 MG, Q4W
     Route: 058
  2. COSENTYX [Suspect]
     Active Substance: SECUKINUMAB
     Indication: PSORIASIS
     Dosage: 300 MG, QW (FOR 5 WEEKS)
     Route: 058
     Dates: start: 20201009

REACTIONS (5)
  - Oesophageal infection [Recovering/Resolving]
  - Secretion discharge [Unknown]
  - Oropharyngeal pain [Unknown]
  - Pharyngitis [Recovered/Resolved]
  - Dysphagia [Recovering/Resolving]

NARRATIVE: CASE EVENT DATE: 20201026
